FAERS Safety Report 22387236 (Version 1)
Quarter: 2023Q2

REPORT INFORMATION
  Report Type: Spontaneous
  Country: US (occurrence: US)
  Receive Date: 20230531
  Receipt Date: 20230531
  Transmission Date: 20230722
  Serious: No
  Sender: FDA-Public Use
  Company Number: US-BEH-2023159147

PATIENT
  Sex: Female

DRUGS (2)
  1. HUMATE-P [Suspect]
     Active Substance: HUMAN COAGULATION FACTOR VIII/VON WILLEBRAND FACTOR COMPLEX
     Indication: Von Willebrand^s disease
     Dosage: 1168 TO 1531 RCOF UNITS DAY 1 REPEAT DAY 3 + 5 IF NEEDED FOR MENSES. 1168-1531 UNITS FOR MINOR BLEED
     Route: 042
     Dates: start: 202106
  2. HUMATE-P [Suspect]
     Active Substance: HUMAN COAGULATION FACTOR VIII/VON WILLEBRAND FACTOR COMPLEX
     Dosage: 2336-2920 RCOF UNITS FOR MAJOR/JOINT BLEED
     Route: 042
     Dates: start: 202106

REACTIONS (1)
  - Tonsillitis [Unknown]
